FAERS Safety Report 8359977-4 (Version None)
Quarter: 2012Q2

REPORT INFORMATION
  Report Type: 
  Country: None (occurrence: None)
  Receive Date: 20120515
  Receipt Date: 20120503
  Transmission Date: 20120825
  Serious: Yes (Hospitalization)
  Sender: FDA-Public Use
  Company Number: CA-JNJFOC-20120411412

PATIENT
  Sex: Male
  Weight: 109 kg

DRUGS (9)
  1. ESCITALOPRAM [Concomitant]
     Route: 065
  2. INFLIXIMAB, RECOMBINANT [Suspect]
     Indication: RHEUMATOID ARTHRITIS
     Route: 042
     Dates: start: 20100505
  3. PANTOPRAZOLE SODIUM [Concomitant]
     Route: 065
  4. INFLIXIMAB, RECOMBINANT [Suspect]
     Indication: CROHN'S DISEASE
     Route: 042
     Dates: start: 20100505
  5. METHOTREXATE [Concomitant]
     Route: 065
  6. PERCOCET [Concomitant]
     Route: 065
  7. FOLIC ACID [Concomitant]
     Route: 065
  8. INFLIXIMAB, RECOMBINANT [Suspect]
     Route: 042
     Dates: start: 20071201
  9. INFLIXIMAB, RECOMBINANT [Suspect]
     Route: 042
     Dates: start: 20071201

REACTIONS (5)
  - JOINT DISLOCATION [None]
  - RASH [None]
  - CONTUSION [None]
  - FACIAL BONES FRACTURE [None]
  - FALL [None]
